FAERS Safety Report 14243381 (Version 1)
Quarter: 2017Q4

REPORT INFORMATION
  Report Type: Spontaneous
  Country: IT (occurrence: FR)
  Receive Date: 20171201
  Receipt Date: 20171201
  Transmission Date: 20180321
  Serious: Yes (Other)
  Sender: FDA-Public Use
  Company Number: IT-LEADIANT BIOSCIENCES INC-2017STPI000863

PATIENT
  Age: 62 Year
  Sex: Male

DRUGS (12)
  1. IFOSFAMIDE DCI [Concomitant]
     Indication: CENTRAL NERVOUS SYSTEM LYMPHOMA
     Dosage: UNK
     Route: 042
     Dates: start: 20150610, end: 20150709
  2. FILGRASTIM [Concomitant]
     Active Substance: FILGRASTIM
     Indication: PROPHYLAXIS
     Dosage: UNK, OTHER
     Route: 051
     Dates: start: 20141003, end: 20150105
  3. IFOSFAMIDE DCI [Concomitant]
     Dosage: UNK
  4. VINCRISTINE SULPHATE [Concomitant]
     Active Substance: VINCRISTINE SULFATE
     Indication: CENTRAL NERVOUS SYSTEM LYMPHOMA
     Dosage: UNK, OTHER
     Route: 042
     Dates: start: 20141003, end: 20150105
  5. ETOPOSIDE. [Concomitant]
     Active Substance: ETOPOSIDE
     Indication: CENTRAL NERVOUS SYSTEM LYMPHOMA
     Dosage: UNK, OTHER
     Route: 042
     Dates: start: 20150610, end: 20150709
  6. CYTARABINE. [Concomitant]
     Active Substance: CYTARABINE
     Indication: CENTRAL NERVOUS SYSTEM LYMPHOMA
     Dosage: UNK, OTHER
     Route: 042
     Dates: start: 20141003, end: 20150105
  7. CARBOPLATIN. [Concomitant]
     Active Substance: CARBOPLATIN
     Indication: CENTRAL NERVOUS SYSTEM LYMPHOMA
     Dosage: UNK, OTHER
     Route: 042
     Dates: start: 20150610, end: 20150709
  8. MATULANE [Suspect]
     Active Substance: PROCARBAZINE HYDROCHLORIDE
     Indication: CENTRAL NERVOUS SYSTEM LYMPHOMA
     Dosage: UNK, OTHER
     Route: 048
     Dates: start: 20141003, end: 20150105
  9. METHOTREXATE. [Concomitant]
     Active Substance: METHOTREXATE
     Indication: CENTRAL NERVOUS SYSTEM LYMPHOMA
     Dosage: UNK, OTHER
     Route: 042
     Dates: start: 20141003, end: 20150105
  10. RITUXIMAB. [Concomitant]
     Active Substance: RITUXIMAB
     Indication: CENTRAL NERVOUS SYSTEM LYMPHOMA
     Dosage: UNK, X1
     Route: 042
     Dates: start: 20150610, end: 20150610
  11. MESNA. [Concomitant]
     Active Substance: MESNA
     Indication: CENTRAL NERVOUS SYSTEM LYMPHOMA
     Dosage: UNK UNK, OTHER
     Route: 042
     Dates: start: 20150610, end: 20150710
  12. PEGFILGRASTIM [Concomitant]
     Active Substance: PEGFILGRASTIM
     Indication: PROPHYLAXIS
     Dosage: UNK, OTHER
     Route: 058
     Dates: start: 20150610, end: 20150710

REACTIONS (1)
  - Angiodysplasia [Not Recovered/Not Resolved]

NARRATIVE: CASE EVENT DATE: 20150608
